FAERS Safety Report 22651874 (Version 1)
Quarter: 2023Q2

REPORT INFORMATION
  Report Type: Spontaneous
  Country: US (occurrence: US)
  Receive Date: 20230628
  Receipt Date: 20230628
  Transmission Date: 20230722
  Serious: No
  Sender: FDA-Public Use
  Company Number: US-CTI BIOPHARMA-2023US03714

PATIENT

DRUGS (14)
  1. VONJO [Suspect]
     Active Substance: PACRITINIB
     Indication: Off label use
     Dosage: 100 MG, QD
     Route: 048
     Dates: start: 20230301
  2. DANAZOL [Concomitant]
     Active Substance: DANAZOL
  3. DEXAMETHASONE [Concomitant]
     Active Substance: DEXAMETHASONE
  4. LENALIDOMIDE [Concomitant]
     Active Substance: LENALIDOMIDE
  5. CRESTOR [Concomitant]
     Active Substance: ROSUVASTATIN CALCIUM
  6. ELIQUIS [Concomitant]
     Active Substance: APIXABAN
  7. FINASTERIDE [Concomitant]
     Active Substance: FINASTERIDE
  8. LOSARTAN [Concomitant]
     Active Substance: LOSARTAN
     Indication: Product used for unknown indication
     Dosage: UNK
  9. GABAPENTIN [Concomitant]
     Active Substance: GABAPENTIN
  10. GLUCOSAMINE CHONDROITIN [CHONDROITIN SULFATE;GLUCOSAMINE] [Concomitant]
  11. JARDIANCE [Concomitant]
     Active Substance: EMPAGLIFLOZIN
  12. PRILOSEC [Concomitant]
     Active Substance: OMEPRAZOLE MAGNESIUM
  13. TYLENOL [Concomitant]
     Active Substance: ACETAMINOPHEN
  14. UROCIT-K [Concomitant]
     Active Substance: POTASSIUM CITRATE

REACTIONS (3)
  - Rhinorrhoea [Unknown]
  - Fatigue [Unknown]
  - Off label use [Unknown]
